FAERS Safety Report 16877575 (Version 1)
Quarter: 2019Q4

REPORT INFORMATION
  Report Type: Spontaneous
  Country: CH (occurrence: CH)
  Receive Date: 20191002
  Receipt Date: 20191002
  Transmission Date: 20200122
  Serious: Yes (Other)
  Sender: FDA-Public Use
  Company Number: PHHY2019CH225750

PATIENT

DRUGS (4)
  1. PALBOCICLIB [Suspect]
     Active Substance: PALBOCICLIB
     Indication: MALIGNANT MELANOMA
     Dosage: UNK UKN, UNK
     Route: 065
  2. TRAMETINIB [Suspect]
     Active Substance: TRAMETINIB
     Indication: IMMUNOSUPPRESSANT DRUG THERAPY
  3. TRAMETINIB [Suspect]
     Active Substance: TRAMETINIB
     Indication: MALIGNANT MELANOMA
     Dosage: 2 MG, QD
     Route: 065
  4. PALBOCICLIB [Suspect]
     Active Substance: PALBOCICLIB
     Indication: IMMUNOSUPPRESSANT DRUG THERAPY

REACTIONS (5)
  - Malignant neoplasm progression [Unknown]
  - Product use in unapproved indication [Unknown]
  - Therapy partial responder [Unknown]
  - Drug resistance [Unknown]
  - Malignant melanoma [Unknown]
